FAERS Safety Report 8068110-8 (Version None)
Quarter: 2012Q1

REPORT INFORMATION
  Report Type: 
  Country: None (occurrence: None)
  Receive Date: 20120124
  Receipt Date: 20110922
  Transmission Date: 20120608
  Serious: No
  Sender: FDA-Public Use
  Company Number: US-AMGEN-USASP2011049028

PATIENT
  Age: 69 Year
  Sex: Female

DRUGS (7)
  1. LOVAZA [Concomitant]
     Dosage: UNK
  2. LIPITOR [Concomitant]
  3. PROLIA [Suspect]
     Indication: OSTEOPOROSIS POSTMENOPAUSAL
     Dosage: 60 MG, Q6MO
     Dates: start: 20110714
  4. VITAMIN C                          /00008001/ [Concomitant]
  5. WOMEN'S MULTI [Concomitant]
     Dosage: UNK
  6. OSCAL                              /00514701/ [Concomitant]
  7. OSTEO-BI-FLEX ADV [Concomitant]
     Dosage: UNK

REACTIONS (3)
  - ARTHRALGIA [None]
  - BACK PAIN [None]
  - BONE PAIN [None]
